FAERS Safety Report 9254445 (Version 1)
Quarter: 2013Q2

REPORT INFORMATION
  Report Type: Spontaneous
  Country: DE (occurrence: DE)
  Receive Date: 20130425
  Receipt Date: 20130425
  Transmission Date: 20140414
  Serious: Yes (Life-Threatening)
  Sender: FDA-Public Use
  Company Number: DE-BRISTOL-MYERS SQUIBB COMPANY-18797050

PATIENT
  Sex: 0

DRUGS (3)
  1. REYATAZ [Suspect]
     Indication: ANTIRETROVIRAL THERAPY
  2. NORVIR [Suspect]
     Indication: ANTIRETROVIRAL THERAPY
  3. TRUVADA [Suspect]
     Indication: ANTIRETROVIRAL THERAPY

REACTIONS (1)
  - Adverse event [Unknown]
